FAERS Safety Report 24882979 (Version 1)
Quarter: 2025Q1

REPORT INFORMATION
  Report Type: Spontaneous
  Country: US (occurrence: None)
  Receive Date: 20250123
  Receipt Date: 20250123
  Transmission Date: 20250408
  Serious: Yes (Disabling)
  Sender: FDA-CTU
  Company Number: None

PATIENT
  Age: 27 Year
  Sex: Female
  Weight: 82.35 kg

DRUGS (9)
  1. VENLAFAXINE [Suspect]
     Active Substance: VENLAFAXINE HYDROCHLORIDE
     Indication: Bipolar II disorder
  2. LAMOTRIGINE [Concomitant]
     Active Substance: LAMOTRIGINE
  3. TRAZODONE [Concomitant]
     Active Substance: TRAZODONE HYDROCHLORIDE
  4. GUANFACINE [Concomitant]
     Active Substance: GUANFACINE
  5. VRAYLAR [Concomitant]
     Active Substance: CARIPRAZINE
  6. BUPROPION [Concomitant]
     Active Substance: BUPROPION
  7. OMEPRAZOLE [Concomitant]
     Active Substance: OMEPRAZOLE
  8. FAMOTIDINE [Concomitant]
     Active Substance: FAMOTIDINE
  9. CLONIDINE [Concomitant]
     Active Substance: CLONIDINE

REACTIONS (4)
  - Fatigue [None]
  - Weight increased [None]
  - Sexual dysfunction [None]
  - Loss of libido [None]

NARRATIVE: CASE EVENT DATE: 20230401
